FAERS Safety Report 7054180-2 (Version None)
Quarter: 2010Q4

REPORT INFORMATION
  Report Type: 
  Country: None (occurrence: None)
  Receive Date: 20101020
  Receipt Date: 20101016
  Transmission Date: 20110411
  Serious: Yes (Death)
  Sender: FDA-Public Use
  Company Number: IN-PFIZER INC-2010131484

PATIENT
  Age: 85 Year
  Sex: Male
  Weight: 58 kg

DRUGS (2)
  1. MAGNEX [Suspect]
     Indication: PNEUMONIA
     Dosage: 3 G, 2X/DAY
     Route: 042
  2. METROGYL [Concomitant]
     Indication: PNEUMONIA
     Dosage: 500 MG, 3X/DAY
     Route: 042

REACTIONS (1)
  - DEATH [None]
